FAERS Safety Report 20720150 (Version 3)
Quarter: 2022Q3

REPORT INFORMATION
  Report Type: Report from Study
  Country: US (occurrence: US)
  Receive Date: 20220418
  Receipt Date: 20220720
  Transmission Date: 20221026
  Serious: No
  Sender: FDA-Public Use
  Company Number: US-SANOFI-01053505

PATIENT
  Age: 37 Year
  Sex: Female
  Weight: 134 kg

DRUGS (5)
  1. DUPIXENT [Suspect]
     Active Substance: DUPILUMAB
     Indication: Chronic rhinosinusitis with nasal polyps
     Dosage: 1 DF, QOW
     Route: 058
     Dates: start: 20200414
  2. LEVOTHYROXINE SODIUM [Concomitant]
     Active Substance: LEVOTHYROXINE SODIUM
     Dosage: 150 MCG, 137 MCG
  3. LINZESS [Concomitant]
     Active Substance: LINACLOTIDE
     Dosage: 290 MCG
  4. ALPRAZOLAM [Concomitant]
     Active Substance: ALPRAZOLAM
  5. BACLOFEN [Concomitant]
     Active Substance: BACLOFEN

REACTIONS (8)
  - Injection site discomfort [Unknown]
  - Dyspnoea [Unknown]
  - Wheezing [Unknown]
  - Sinusitis [Unknown]
  - Upper-airway cough syndrome [Unknown]
  - Respiratory rate increased [Unknown]
  - Injection site pain [Unknown]
  - Injection site swelling [Unknown]
